FAERS Safety Report 8877279 (Version 2)
Quarter: 2013Q3

REPORT INFORMATION
  Report Type: Spontaneous
  Country: US (occurrence: None)
  Receive Date: 20120426
  Receipt Date: 20130724
  Transmission Date: 20140515
  Serious: Yes (Other)
  Sender: FDA-Public Use
  Company Number: PHEH2011US011934

PATIENT
  Age: 32 Year
  Sex: Female

DRUGS (1)
  1. GILENYA [Suspect]
     Dates: start: 20111121

REACTIONS (5)
  - Nausea [None]
  - Decreased appetite [None]
  - Malaise [None]
  - Nasopharyngitis [None]
  - Influenza [None]
